FAERS Safety Report 10889017 (Version 1)
Quarter: 2015Q1

REPORT INFORMATION
  Report Type: Spontaneous
  Country: NL (occurrence: NL)
  Receive Date: 20150305
  Receipt Date: 20150305
  Transmission Date: 20150721
  Serious: Yes (Hospitalization)
  Sender: FDA-Public Use
  Company Number: NL-TEVA-544981ISR

PATIENT
  Age: 93 Year
  Sex: Female
  Weight: 50 kg

DRUGS (10)
  1. AMOXICILLIN. [Suspect]
     Active Substance: AMOXICILLIN
     Indication: RESPIRATORY TRACT INFECTION
     Dosage: 1500 MILLIGRAM DAILY; 3 TIMES DAILY ONE PIECE
     Route: 048
     Dates: start: 20150202, end: 20150213
  2. KALCIPOS-D KAUWTABLET 500MG/800IE [Concomitant]
     Dosage: 1 DOSAGE FORMS DAILY; 1 DD 1
     Route: 048
  3. ACTONEL WEKELIJKS TABLET FILMOMHULD 35MG [Concomitant]
     Dosage: ONCE A WEEK
     Route: 048
  4. ENALAPRIL TABLET  5MG [Concomitant]
     Dosage: 2.5 MILLIGRAM DAILY; 1 DD 2,5 MG
     Route: 048
  5. PLAQUENIL TABLET OMHULD 200MG [Concomitant]
     Dosage: 400 MILLIGRAM DAILY; 2 DD 1
     Route: 048
  6. ACENOCOUMAROL TABLET 1MG [Concomitant]
     Active Substance: ACENOCOUMAROL
     Dosage: ACCORDING TO SCHEDULE
     Route: 048
  7. OMEPRAZOL CAPSULE MGA 20MG [Concomitant]
     Dosage: 1 DD 1
     Route: 048
  8. SELOKEEN ZOC  50 TABLET MGA  47,5MG [Concomitant]
     Active Substance: METOPROLOL TARTRATE
     Dosage: 50 MILLIGRAM DAILY; 1 DD 1
     Route: 048
  9. PREDNISOLON TABLET  5MG [Concomitant]
     Dosage: 10 MILLIGRAM DAILY; 1 DD 10 MG
     Route: 048
  10. VIDISIC CARBOGEL OOGGEL 2MG/G TUBE 10G [Concomitant]
     Dosage: 2 DOSAGE FORMS DAILY; 2 DD 1
     Route: 047

REACTIONS (2)
  - Liver function test abnormal [Recovering/Resolving]
  - Fall [Unknown]

NARRATIVE: CASE EVENT DATE: 201502
